APPROVED DRUG PRODUCT: KETOCONAZOLE
Active Ingredient: KETOCONAZOLE
Strength: 200MG
Dosage Form/Route: TABLET;ORAL
Application: A075273 | Product #001
Applicant: TEVA PHARMACEUTICALS USA INC
Approved: Jun 15, 1999 | RLD: No | RS: No | Type: DISCN